FAERS Safety Report 5333561-9 (Version None)
Quarter: 2007Q2

REPORT INFORMATION
  Report Type: 
  Country: None (occurrence: None)
  Receive Date: 20070524
  Receipt Date: 20070521
  Transmission Date: 20071010
  Serious: Yes (Death)
  Sender: FDA-Public Use
  Company Number: PHBS2006JP07227

PATIENT
  Sex: Male

DRUGS (4)
  1. PURSENNID [Suspect]
     Route: 048
  2. TOFRANIL [Suspect]
     Indication: DEPRESSION
     Route: 048
  3. TRYPTANOL /AUS/ [Concomitant]
  4. RESLIN [Concomitant]

REACTIONS (11)
  - ALANINE AMINOTRANSFERASE INCREASED [None]
  - ASPARTATE AMINOTRANSFERASE INCREASED [None]
  - BLOOD CREATINE PHOSPHOKINASE INCREASED [None]
  - BLOOD UREA INCREASED [None]
  - BODY TEMPERATURE INCREASED [None]
  - CHROMATURIA [None]
  - DROOLING [None]
  - FALL [None]
  - MUSCLE RIGIDITY [None]
  - NEUROLEPTIC MALIGNANT SYNDROME [None]
  - PNEUMONIA [None]
